FAERS Safety Report 7967888-9 (Version None)
Quarter: 2011Q4

REPORT INFORMATION
  Report Type: 
  Country: None (occurrence: None)
  Receive Date: 20111209
  Receipt Date: 20111201
  Transmission Date: 20120403
  Serious: Yes (Hospitalization)
  Sender: FDA-Public Use
  Company Number: US-SANOFI-AVENTIS-2011SA079455

PATIENT
  Age: 63 Year
  Sex: Female

DRUGS (3)
  1. OPTICLICK [Suspect]
     Dates: start: 20100101
  2. NOVOLOG [Concomitant]
  3. LANTUS [Suspect]
     Dosage: 22-25UNITS
     Route: 058
     Dates: start: 20100101

REACTIONS (4)
  - PNEUMONIA [None]
  - BLOOD GLUCOSE INCREASED [None]
  - INJECTION SITE HAEMATOMA [None]
  - DRUG DOSE OMISSION [None]
